FAERS Safety Report 14628366 (Version 2)
Quarter: 2018Q2

REPORT INFORMATION
  Report Type: Report from Study
  Country: US (occurrence: US)
  Receive Date: 20180312
  Receipt Date: 20180402
  Transmission Date: 20180711
  Serious: Yes (Death, Hospitalization, Other)
  Sender: FDA-Public Use
  Company Number: US-GILEAD-2017-0295326

PATIENT
  Age: 84 Year
  Sex: Male
  Weight: 73.3 kg

DRUGS (9)
  1. IDELALISIB [Suspect]
     Active Substance: IDELALISIB
     Indication: CHRONIC LYMPHOCYTIC LEUKAEMIA
     Dosage: 100 MG, BID
     Route: 048
     Dates: start: 20171129
  2. WARFARIN [Suspect]
     Active Substance: WARFARIN
     Dosage: 4 MG, UNK
     Route: 048
     Dates: end: 20170929
  3. WARFARIN [Suspect]
     Active Substance: WARFARIN
     Indication: VALVULOPLASTY CARDIAC
     Dosage: UNK
     Route: 065
     Dates: start: 20171212
  4. RITUXAN [Concomitant]
     Active Substance: RITUXIMAB
     Dosage: UNK
     Route: 042
     Dates: start: 20171109, end: 20171110
  5. BUMEX [Concomitant]
     Active Substance: BUMETANIDE
     Indication: DIURETIC THERAPY
     Dosage: 2 MG, UNK
     Route: 048
  6. VITAMIN B12 [Concomitant]
     Active Substance: CYANOCOBALAMIN
     Indication: VITAMIN SUPPLEMENTATION
     Dosage: 1000 MG, UNK
     Route: 048
  7. IDELALISIB [Suspect]
     Active Substance: IDELALISIB
     Dosage: 100 MG, BID
     Route: 048
     Dates: start: 20170911, end: 20170929
  8. KLOR-CON [Concomitant]
     Active Substance: POTASSIUM CHLORIDE
     Indication: MINERAL SUPPLEMENTATION
     Dosage: 10 MEQ, UNK
     Route: 048
  9. PERCOCET                           /00446701/ [Concomitant]
     Active Substance: ACETAMINOPHEN\OXYCODONE HYDROCHLORIDE\OXYCODONE TEREPHTHALATE
     Indication: PAIN
     Dosage: 1 DF, UNK
     Route: 048

REACTIONS (23)
  - Influenza [Fatal]
  - Bacteraemia [Recovering/Resolving]
  - Retroperitoneal haemorrhage [Unknown]
  - Decreased appetite [Unknown]
  - Nausea [Unknown]
  - Pyrexia [Unknown]
  - Chills [Unknown]
  - Tooth infection [Unknown]
  - Constipation [Not Recovered/Not Resolved]
  - Bacteraemia [Fatal]
  - Haemophilus infection [Recovering/Resolving]
  - Tachycardia [Unknown]
  - Asthenia [Unknown]
  - Post procedural infection [Recovering/Resolving]
  - Dizziness [Unknown]
  - Diarrhoea [Recovered/Resolved]
  - Tooth extraction [Unknown]
  - Cellulitis [Recovering/Resolving]
  - Hypotension [Unknown]
  - Dental pulp disorder [Unknown]
  - Malaise [Not Recovered/Not Resolved]
  - Fatigue [Not Recovered/Not Resolved]
  - Vomiting [Unknown]

NARRATIVE: CASE EVENT DATE: 20170919
